FAERS Safety Report 6410140-3 (Version None)
Quarter: 2009Q4

REPORT INFORMATION
  Report Type: 
  Country: None (occurrence: None)
  Receive Date: 20091022
  Receipt Date: 20091014
  Transmission Date: 20100525
  Serious: Yes (Hospitalization)
  Sender: FDA-Public Use
  Company Number: JP-ROCHE-656620

PATIENT
  Sex: Female

DRUGS (5)
  1. HORIZON [Suspect]
     Indication: MENTAL DISORDER
     Route: 048
     Dates: start: 20090907, end: 20090907
  2. ROCEPHIN [Suspect]
     Indication: INFECTION PROPHYLAXIS
     Route: 041
     Dates: start: 20090907, end: 20090907
  3. ROPION [Suspect]
     Indication: ANALGESIC THERAPY
     Dosage: ROUTE:INTRAVENOUS (NOT OTHERWISE SPECIFIED)
     Route: 042
     Dates: start: 20090907, end: 20090907
  4. DECADRON [Suspect]
     Indication: PROPHYLAXIS
     Dosage: ROUTE: INTRAVENOUS (NOT OTHERWISE SPECIFIED)
     Route: 042
     Dates: start: 20090607, end: 20090907
  5. LAUGHING GAS [Concomitant]
     Dosage: DOSE FORM: INHALANT (GAS), ROUTE: RESPIRATORY (INHALATION)
     Route: 055
     Dates: start: 20090907, end: 20090907

REACTIONS (1)
  - ANAPHYLACTIC SHOCK [None]
